FAERS Safety Report 9685956 (Version 1)
Quarter: 2013Q4

REPORT INFORMATION
  Report Type: Spontaneous
  Country: US (occurrence: US)
  Receive Date: 20131113
  Receipt Date: 20131113
  Transmission Date: 20140711
  Serious: No
  Sender: FDA-Public Use
  Company Number: US-ALLERGAN-1310543US

PATIENT
  Age: 74 Year
  Sex: Female

DRUGS (2)
  1. COMBIGAN[R] [Suspect]
     Indication: INTRAOCULAR PRESSURE INCREASED
     Dosage: 2 GTT, UNK
     Route: 047
  2. LIPITOR [Concomitant]
     Indication: BLOOD TRIGLYCERIDES INCREASED
     Dosage: UNK

REACTIONS (5)
  - Gingival swelling [Recovered/Resolved]
  - Sensory disturbance [Recovered/Resolved]
  - Sensory disturbance [Recovered/Resolved]
  - Ageusia [Recovered/Resolved]
  - Eye pruritus [Recovered/Resolved]
